FAERS Safety Report 7965434-7 (Version None)
Quarter: 2011Q4

REPORT INFORMATION
  Report Type: 
  Country: None (occurrence: None)
  Receive Date: 20111208
  Receipt Date: 20111128
  Transmission Date: 20120403
  Serious: Yes (Congenital Anomaly)
  Sender: FDA-Public Use
  Company Number: FR-TEVA-312561ISR

PATIENT
  Sex: Male
  Weight: 3.3 kg

DRUGS (1)
  1. LEVONORGESTREL [Suspect]
     Route: 064
     Dates: start: 20101231, end: 20110113

REACTIONS (2)
  - MATERNAL EXPOSURE DURING PREGNANCY [None]
  - CONGENITAL PYELOCALIECTASIS [None]
